FAERS Safety Report 8049564-X (Version None)
Quarter: 2012Q1

REPORT INFORMATION
  Report Type: 
  Country: None (occurrence: None)
  Receive Date: 20120117
  Receipt Date: 20120111
  Transmission Date: 20120608
  Serious: Yes (Hospitalization, Other)
  Sender: FDA-Public Use
  Company Number: US-PFIZER INC-2009266815

PATIENT
  Sex: Male

DRUGS (3)
  1. CHANTIX [Suspect]
     Indication: SMOKING CESSATION THERAPY
     Dosage: 0.5/1MG, UNK
     Route: 048
     Dates: start: 20070201, end: 20070301
  2. VICODIN [Concomitant]
     Indication: PAIN
     Dosage: UNK
     Dates: start: 20050101
  3. CYMBALTA [Concomitant]
     Indication: DEPRESSION
     Dosage: UNK
     Dates: start: 20060101

REACTIONS (7)
  - AGGRESSION [None]
  - SCAR [None]
  - DEPRESSION [None]
  - BLINDNESS UNILATERAL [None]
  - SUICIDE ATTEMPT [None]
  - ANXIETY [None]
  - IRRITABILITY [None]
